FAERS Safety Report 21032308 (Version 5)
Quarter: 2022Q4

REPORT INFORMATION
  Report Type: Spontaneous
  Country: US (occurrence: US)
  Receive Date: 20220701
  Receipt Date: 20221207
  Transmission Date: 20230113
  Serious: Yes (Other)
  Sender: FDA-Public Use
  Company Number: US-PFIZER INC-202200596096

PATIENT
  Age: 65 Year

DRUGS (2)
  1. ESTRING [Suspect]
     Active Substance: ESTRADIOL
     Indication: Urinary tract infection
     Dosage: UNK
  2. ESTRING [Suspect]
     Active Substance: ESTRADIOL
     Indication: Malaise

REACTIONS (5)
  - Pulmonary congestion [Unknown]
  - COVID-19 [Unknown]
  - Device difficult to use [Unknown]
  - Drug effective for unapproved indication [Unknown]
  - Off label use [Unknown]
